FAERS Safety Report 6734251-8 (Version None)
Quarter: 2010Q2

REPORT INFORMATION
  Report Type: 
  Country: None (occurrence: None)
  Receive Date: 20100520
  Receipt Date: 20100510
  Transmission Date: 20101027
  Serious: Yes (Hospitalization)
  Sender: FDA-Public Use
  Company Number: PHHY2009DE56055

PATIENT
  Sex: Female

DRUGS (5)
  1. ACLASTA [Suspect]
     Indication: OSTEOPOROSIS
     Dosage: 5 MG, YEARLY
     Route: 042
     Dates: start: 20091201, end: 20091201
  2. RAMIPRIL [Suspect]
     Indication: HYPERTENSION
     Dosage: 5 MG,
     Route: 048
  3. METOPROLOL TARTRATE [Concomitant]
     Indication: HYPERTENSION
     Dosage: 25.75 MG,
     Route: 048
  4. TILIDIN COMP. [Concomitant]
     Indication: BONE PAIN
     Dosage: 50 MG,
     Route: 048
  5. NOVAMINSULFON ^BRAUN^ [Concomitant]

REACTIONS (7)
  - BRONCHIAL DISORDER [None]
  - DEHYDRATION [None]
  - DIARRHOEA [None]
  - GASTROINTESTINAL INFECTION [None]
  - GENERAL PHYSICAL HEALTH DETERIORATION [None]
  - HYPONATRAEMIA [None]
  - NAUSEA [None]
